FAERS Safety Report 9049735 (Version 2)
Quarter: 2013Q1

REPORT INFORMATION
  Report Type: Spontaneous
  Country: CN (occurrence: CN)
  Receive Date: 20130131
  Receipt Date: 20130131
  Transmission Date: 20140127
  Serious: Yes (Death)
  Sender: FDA-Public Use
  Company Number: CN-ROCHE-1177959

PATIENT
  Age: 8 Month
  Sex: 0

DRUGS (2)
  1. ROCEPHIN [Suspect]
     Indication: LUNG INFECTION
     Route: 041
  2. ROCEPHIN [Suspect]
     Indication: LARYNGITIS

REACTIONS (1)
  - Death [Fatal]
